FAERS Safety Report 21947277 (Version 3)
Quarter: 2023Q1

REPORT INFORMATION
  Report Type: Spontaneous
  Country: US (occurrence: US)
  Receive Date: 20230202
  Receipt Date: 20230223
  Transmission Date: 20230418
  Serious: Yes (Hospitalization)
  Sender: FDA-Public Use
  Company Number: US-UNITED THERAPEUTICS-UNT-2023-001823

PATIENT
  Age: 83 Year
  Sex: Male
  Weight: 60.317 kg

DRUGS (4)
  1. REMODULIN [Suspect]
     Active Substance: TREPROSTINIL
     Indication: Pulmonary arterial hypertension
     Dosage: 0.074 ?G/KG, CONTINUING
     Route: 041
  2. REMODULIN [Suspect]
     Active Substance: TREPROSTINIL
     Dosage: 0.071 ?G/KG, CONTINUING
     Route: 041
     Dates: start: 20230118
  3. REMODULIN [Suspect]
     Active Substance: TREPROSTINIL
     Dosage: 0.075 ?G/KG, CONTINUING
     Route: 041
  4. REMODULIN [Suspect]
     Active Substance: TREPROSTINIL
     Dosage: UNK, CONTINUING
     Route: 041
     Dates: start: 20211028

REACTIONS (4)
  - Peripheral swelling [Unknown]
  - Oedema [Unknown]
  - Oxygen saturation decreased [Unknown]
  - Swelling [Unknown]

NARRATIVE: CASE EVENT DATE: 20230124
